FAERS Safety Report 13073065 (Version 2)
Quarter: 2017Q2

REPORT INFORMATION
  Report Type: Spontaneous
  Country: SI (occurrence: SI)
  Receive Date: 20161229
  Receipt Date: 20170405
  Transmission Date: 20170830
  Serious: Yes (Life-Threatening)
  Sender: FDA-Public Use
  Company Number: SI-INDIVIOR LIMITED-INDV-097493-2016

PATIENT
  Sex: Male

DRUGS (3)
  1. SUBOXONE [Suspect]
     Active Substance: BUPRENORPHINE HYDROCHLORIDE\NALOXONE HYDROCHLORIDE
     Indication: DRUG USE DISORDER
     Dosage: 2MG UNK ONE TABLET
     Route: 048
  2. BUPRENORPHINE. [Suspect]
     Active Substance: BUPRENORPHINE
     Indication: DRUG USE DISORDER
     Dosage: UNK
     Route: 065
  3. BENZODIAZEPINE DERIVATIVES [Suspect]
     Active Substance: BENZODIAZEPINE
     Indication: DRUG USE DISORDER
     Dosage: UNK
     Route: 065

REACTIONS (5)
  - Hypersensitivity [Recovered/Resolved]
  - Oesophageal oedema [Recovered/Resolved]
  - Intentional product use issue [Unknown]
  - Substance use disorder [Unknown]
  - Dystonia [Recovered/Resolved]

NARRATIVE: CASE EVENT DATE: 20161222
